FAERS Safety Report 12846050 (Version 7)
Quarter: 2016Q4

REPORT INFORMATION
  Report Type: Report from Study
  Country: US (occurrence: US)
  Receive Date: 20161014
  Receipt Date: 20161122
  Transmission Date: 20170207
  Serious: Yes (Life-Threatening, Hospitalization, Other)
  Sender: FDA-Public Use
  Company Number: US-BRISTOL-MYERS SQUIBB COMPANY-BMS-2016-084841

PATIENT
  Age: 64 Year
  Sex: Female
  Weight: 61.4 kg

DRUGS (26)
  1. MAGNESIUM SULFATE. [Concomitant]
     Active Substance: MAGNESIUM SULFATE
     Indication: HYPOMAGNESAEMIA
     Dosage: 1 G, UNK
     Route: 042
     Dates: start: 20160923, end: 20160923
  2. SENNA                              /00142201/ [Concomitant]
     Active Substance: SENNA LEAF
     Indication: CONSTIPATION
     Dosage: 1 TAB, UNK
     Route: 048
     Dates: start: 20160923, end: 20160925
  3. MAGNESIUM OXIDE. [Concomitant]
     Active Substance: MAGNESIUM OXIDE
     Indication: HYPOMAGNESAEMIA
     Dosage: 1600 MG, UNK
     Route: 048
     Dates: start: 20160923, end: 20160925
  4. POLYETHYLENE GLYCOL [Concomitant]
     Active Substance: POLYETHYLENE GLYCOLS
     Indication: CONSTIPATION
     Dosage: 17 G, QD
     Route: 048
     Dates: start: 20160924, end: 20160925
  5. DIPHENHYDRAMINE. [Concomitant]
     Active Substance: DIPHENHYDRAMINE
     Indication: PRODUCT USED FOR UNKNOWN INDICATION
     Dosage: 25 MG, UNK
     Route: 048
     Dates: start: 20160924, end: 20160924
  6. LIDOCAINE. [Concomitant]
     Active Substance: LIDOCAINE
     Indication: PRODUCT USED FOR UNKNOWN INDICATION
     Dosage: 40 MG, UNK
     Route: 042
     Dates: start: 20160929, end: 20160929
  7. CARBOXYMETHYLCELLULOSE SODIUM. [Concomitant]
     Active Substance: CARBOXYMETHYLCELLULOSE SODIUM
     Indication: DRY EYE
     Dosage: 1 DF, 2 DROPS
     Route: 047
     Dates: start: 20161005, end: 20161005
  8. IPILIMUMAB [Suspect]
     Active Substance: IPILIMUMAB
     Indication: MALIGNANT MELANOMA
     Dosage: 1 DF, UNK
     Route: 065
     Dates: start: 20160715, end: 20160915
  9. PROBIOTIC                          /06395501/ [Concomitant]
     Active Substance: BIFIDOBACTERIUM ANIMALIS SUBSP. LACTIS
     Indication: PRODUCT USED FOR UNKNOWN INDICATION
     Dosage: 1 DF, UNK
     Route: 048
     Dates: start: 20160614
  10. LEVOTHYROXINE. [Concomitant]
     Active Substance: LEVOTHYROXINE
     Indication: HYPERTHYROIDISM
     Dosage: 75 ?G, UNK
     Route: 048
     Dates: start: 20160818
  11. LORAZEPAM. [Concomitant]
     Active Substance: LORAZEPAM
     Indication: NAUSEA
     Dosage: 0.5 MG, UNK
     Route: 048
     Dates: start: 20160930, end: 20160930
  12. COLACE [Concomitant]
     Active Substance: DOCUSATE SODIUM
     Indication: CONSTIPATION
     Dosage: 200 MG, UNK
     Route: 048
     Dates: start: 20160923, end: 20160925
  13. ONDANSETRON [Concomitant]
     Active Substance: ONDANSETRON
     Indication: NAUSEA
     Dosage: 4 MG, UNK
     Route: 042
     Dates: start: 20160923, end: 20160925
  14. ZOFRAN [Concomitant]
     Active Substance: ONDANSETRON HYDROCHLORIDE
     Indication: DECREASED APPETITE
     Dosage: 4 MG, UNK
     Route: 048
     Dates: start: 20160724
  15. POTASSIUM CHLORIDE. [Concomitant]
     Active Substance: POTASSIUM CHLORIDE
     Indication: HYPOKALAEMIA
     Dosage: 20 MEQ/ML, UNK
     Route: 042
     Dates: start: 20160923
  16. DIGESTIVE ENZYMES                  /02161301/ [Concomitant]
     Indication: PRODUCT USED FOR UNKNOWN INDICATION
     Dosage: 1 TAB, UNK
     Route: 048
     Dates: start: 20160614
  17. ZOLPIDEM [Concomitant]
     Active Substance: ZOLPIDEM\ZOLPIDEM TARTRATE
     Indication: INSOMNIA
     Dosage: 12.5 MG, UNK
     Route: 048
     Dates: start: 20160818
  18. CALCIUM CARBONATE. [Concomitant]
     Active Substance: CALCIUM CARBONATE
     Indication: PRODUCT USED FOR UNKNOWN INDICATION
     Dosage: 500 MG, UNK
     Route: 048
     Dates: start: 20160925, end: 20160925
  19. OXYCODONE [Concomitant]
     Active Substance: OXYCODONE
     Indication: BACK PAIN
     Dosage: 10 MG, UNK
     Route: 048
     Dates: start: 20160623
  20. ACETAMINOPHEN. [Concomitant]
     Active Substance: ACETAMINOPHEN
     Indication: PYREXIA
     Dosage: 650 MG, UNK
     Route: 048
     Dates: start: 20160722
  21. PROPOFOL. [Concomitant]
     Active Substance: PROPOFOL
     Indication: PRODUCT USED FOR UNKNOWN INDICATION
     Dosage: 150 ?G, UNK
     Route: 042
     Dates: start: 20160929, end: 20160929
  22. NIVOLUMAB [Suspect]
     Active Substance: NIVOLUMAB
     Indication: MALIGNANT MELANOMA
     Dosage: 1 DF, UNK
     Route: 065
     Dates: start: 20160715, end: 20160915
  23. MULTIVITAMIN                       /00097801/ [Concomitant]
     Active Substance: VITAMINS
     Indication: PRODUCT USED FOR UNKNOWN INDICATION
     Dosage: 1 DF, UNK
     Route: 048
     Dates: start: 20160614
  24. REGLAN [Concomitant]
     Active Substance: METOCLOPRAMIDE HYDROCHLORIDE
     Indication: NAUSEA
     Dosage: 5 MG, UNK
     Route: 042
     Dates: start: 20160928, end: 20160930
  25. SODIUM CHLORIDE. [Concomitant]
     Active Substance: SODIUM CHLORIDE
     Indication: DEHYDRATION
     Dosage: 100 UNK, UNK
     Route: 042
     Dates: start: 20160923, end: 20161001
  26. PROMETHAZINE [Concomitant]
     Active Substance: PROMETHAZINE\PROMETHAZINE HYDROCHLORIDE
     Indication: NAUSEA
     Dosage: 1.25 MG, UNK
     Route: 048
     Dates: start: 20160925, end: 20160925

REACTIONS (5)
  - Duodenitis [Recovered/Resolved with Sequelae]
  - Colitis [Recovered/Resolved with Sequelae]
  - Vomiting [Recovered/Resolved]
  - Nausea [Recovered/Resolved]
  - Gastritis [Recovered/Resolved with Sequelae]

NARRATIVE: CASE EVENT DATE: 20160927
